FAERS Safety Report 7709809-X (Version None)
Quarter: 2011Q3

REPORT INFORMATION
  Report Type: 
  Country: None (occurrence: None)
  Receive Date: 20110825
  Receipt Date: 20110823
  Transmission Date: 20111222
  Serious: Yes (Disabling, Other)
  Sender: FDA-Public Use
  Company Number: BR-BAYER-2011-076718

PATIENT
  Age: 54 Year
  Sex: Male
  Weight: 87 kg

DRUGS (14)
  1. HYDRALAZINE HYDROCHLORIDE [Concomitant]
     Indication: CEREBROVASCULAR ACCIDENT
     Dosage: 150 MG, QD
     Route: 048
     Dates: start: 20110301
  2. SORAFENIB (RAF KINASE INHIBITOR) [Suspect]
     Indication: HEPATIC NEOPLASM MALIGNANT
     Dosage: 400 MG, BID
     Route: 048
     Dates: start: 20110801
  3. LACTULONA [Concomitant]
     Indication: FLUID RETENTION
     Dosage: 15 ML, TID
     Route: 048
     Dates: start: 20110726
  4. COLTRAX [Concomitant]
     Indication: EXOSTOSIS
     Dosage: 4 MG, PRN
     Route: 048
     Dates: start: 20110719
  5. HYDROCHLOROTHIAZIDE [Concomitant]
     Indication: PRODUCT USED FOR UNKNOWN INDICATION
     Dosage: 25 MG, QD
     Route: 048
     Dates: start: 20110301
  6. PHENYTOIN [Concomitant]
     Indication: CONVULSION PROPHYLAXIS
     Dosage: 300 MG, QD
     Route: 048
     Dates: start: 20110501
  7. BUSCOPAN COMP [Concomitant]
     Indication: ABDOMINAL PAIN
     Dosage: 40 GTT, PRN
     Route: 048
     Dates: start: 20110101
  8. SPIRONOLACTONE [Concomitant]
     Indication: OEDEMA PERIPHERAL
  9. CLONIDINE HYDROCHLORIDE [Concomitant]
     Indication: CEREBROVASCULAR ACCIDENT
     Dosage: 200 MG, QD
     Route: 048
     Dates: start: 20110301
  10. SPIRONOLACTONE [Concomitant]
     Indication: ABDOMINAL DISTENSION
     Dosage: 1 MG, QD
     Route: 048
     Dates: start: 20110301
  11. DIAZEPAM [Concomitant]
     Indication: SLEEP DISORDER
     Dosage: 0.25 MG, QD
     Route: 048
     Dates: start: 20110819
  12. OMEPRAZOLE [Concomitant]
     Indication: PROPHYLAXIS
     Dosage: 40 MG, QD
     Route: 048
     Dates: start: 20110501
  13. PROPRANOLOL [Concomitant]
     Indication: CEREBROVASCULAR ACCIDENT
     Dosage: 3 DF, QD
     Route: 048
     Dates: start: 20110301
  14. AMLODIPINE [Concomitant]
     Indication: CEREBROVASCULAR ACCIDENT
     Dosage: 10 MG, QD
     Route: 048
     Dates: start: 20110301

REACTIONS (6)
  - CONFUSIONAL STATE [None]
  - ABDOMINAL PAIN [None]
  - COORDINATION ABNORMAL [None]
  - PRE-EXISTING CONDITION IMPROVED [None]
  - ACTIVITIES OF DAILY LIVING IMPAIRED [None]
  - DECREASED APPETITE [None]
